FAERS Safety Report 8975860 (Version 1)
Quarter: 2012Q4

REPORT INFORMATION
  Report Type: 
  Country: US (occurrence: US)
  Receive Date: 20121219
  Receipt Date: 20121219
  Transmission Date: 20130627
  Serious: Yes (Other)
  Sender: FDA-Public Use
  Company Number: US-AMGEN-USASP2012068180

PATIENT
  Sex: Female

DRUGS (4)
  1. PROLIA [Suspect]
     Indication: OSTEOPOROSIS POSTMENOPAUSAL
     Dosage: UNK
     Dates: start: 20120925
  2. DILTIAZEM [Concomitant]
     Dosage: 120 mg, UNK
  3. DILTIAZEM [Concomitant]
     Dosage: 240 mg, UNK
  4. XANAX [Concomitant]
     Dosage: UNK UNK, prn

REACTIONS (1)
  - Atrial fibrillation [Unknown]
